FAERS Safety Report 4374201-5 (Version None)
Quarter: 2004Q2

REPORT INFORMATION
  Report Type: 
  Country: None (occurrence: None)
  Receive Date: 20040608
  Receipt Date: 20040608
  Transmission Date: 20050107
  Serious: Yes (Hospitalization)
  Sender: FDA-Public Use
  Company Number: None

PATIENT
  Sex: Male
  Weight: 68.0396 kg

DRUGS (1)
  1. AMPHOTEC [Suspect]
     Dosage: 345 MG IV
     Route: 042
     Dates: start: 20040519, end: 20040605

REACTIONS (2)
  - CHILLS [None]
  - PAIN [None]
